FAERS Safety Report 9475045 (Version 5)
Quarter: 2014Q2

REPORT INFORMATION
  Report Type: Spontaneous
  Country: JP (occurrence: JP)
  Receive Date: 20130824
  Receipt Date: 20140416
  Transmission Date: 20141212
  Serious: Yes (Hospitalization, Other)
  Sender: FDA-Public Use
  Company Number: JP-ROCHE-1252585

PATIENT
  Age: 69 Year
  Sex: Female
  Weight: 38 kg

DRUGS (3)
  1. XELODA [Suspect]
     Indication: COLON CANCER
     Dosage: 2 WEEKS ADMINISTRATION FOLLOWED BY 1 WEEK REST
     Route: 048
     Dates: start: 20130627, end: 20130711
  2. ELPLAT [Suspect]
     Indication: COLON CANCER
     Dosage: SINGLE DOSE ADMINISTRATION
     Route: 041
     Dates: start: 20130627, end: 20130627
  3. PYDOXAL [Concomitant]
     Indication: PROPHYLAXIS
     Route: 048
     Dates: start: 20130627, end: 20130711

REACTIONS (7)
  - Enterocolitis [Recovering/Resolving]
  - Neutrophil count decreased [Recovered/Resolved]
  - Pyrexia [Recovering/Resolving]
  - Stomatitis [Recovering/Resolving]
  - White blood cell count decreased [Unknown]
  - Bone marrow failure [Recovered/Resolved]
  - Decreased appetite [Recovering/Resolving]
